FAERS Safety Report 25824130 (Version 1)
Quarter: 2025Q3

REPORT INFORMATION
  Report Type: Spontaneous
  Country: GB (occurrence: GB)
  Receive Date: 20250919
  Receipt Date: 20250919
  Transmission Date: 20251021
  Serious: Yes (Life-Threatening, Hospitalization)
  Sender: MYLAN
  Company Number: GB-MYLANLABS-2025M1080160

PATIENT
  Age: 32 Year
  Sex: Female

DRUGS (44)
  1. SERTRALINE [Suspect]
     Active Substance: SERTRALINE HYDROCHLORIDE
     Indication: Depression
     Dosage: 200 MILLIGRAM, QD
  2. SERTRALINE [Suspect]
     Active Substance: SERTRALINE HYDROCHLORIDE
     Dosage: 200 MILLIGRAM, QD
     Route: 065
  3. SERTRALINE [Suspect]
     Active Substance: SERTRALINE HYDROCHLORIDE
     Dosage: 200 MILLIGRAM, QD
     Route: 065
  4. SERTRALINE [Suspect]
     Active Substance: SERTRALINE HYDROCHLORIDE
     Dosage: 200 MILLIGRAM, QD
  5. METFORMIN [Suspect]
     Active Substance: METFORMIN HYDROCHLORIDE
     Indication: Gestational diabetes
     Dosage: 500 MILLIGRAM, BID
  6. METFORMIN [Suspect]
     Active Substance: METFORMIN HYDROCHLORIDE
     Dosage: 500 MILLIGRAM, BID
     Route: 048
  7. METFORMIN [Suspect]
     Active Substance: METFORMIN HYDROCHLORIDE
     Dosage: 500 MILLIGRAM, BID
     Route: 048
  8. METFORMIN [Suspect]
     Active Substance: METFORMIN HYDROCHLORIDE
     Dosage: 500 MILLIGRAM, BID
  9. DIAMORPHINE [Suspect]
     Active Substance: DIAMORPHINE
     Indication: Spinal anaesthesia
  10. DIAMORPHINE [Suspect]
     Active Substance: DIAMORPHINE
     Route: 037
  11. DIAMORPHINE [Suspect]
     Active Substance: DIAMORPHINE
     Route: 037
  12. DIAMORPHINE [Suspect]
     Active Substance: DIAMORPHINE
  13. CEFUROXIME [Suspect]
     Active Substance: CEFUROXIME
     Indication: Product used for unknown indication
  14. CEFUROXIME [Suspect]
     Active Substance: CEFUROXIME
     Route: 042
  15. CEFUROXIME [Suspect]
     Active Substance: CEFUROXIME
     Route: 042
  16. CEFUROXIME [Suspect]
     Active Substance: CEFUROXIME
  17. HYDROCORTISONE [Suspect]
     Active Substance: HYDROCORTISONE
     Indication: Anaphylactic reaction
  18. HYDROCORTISONE [Suspect]
     Active Substance: HYDROCORTISONE
     Route: 042
  19. HYDROCORTISONE [Suspect]
     Active Substance: HYDROCORTISONE
     Route: 042
  20. HYDROCORTISONE [Suspect]
     Active Substance: HYDROCORTISONE
  21. EPINEPHRINE [Suspect]
     Active Substance: EPINEPHRINE
     Indication: Anaphylactic reaction
  22. EPINEPHRINE [Suspect]
     Active Substance: EPINEPHRINE
     Route: 042
  23. EPINEPHRINE [Suspect]
     Active Substance: EPINEPHRINE
     Route: 042
  24. EPINEPHRINE [Suspect]
     Active Substance: EPINEPHRINE
  25. INSULIN HUMAN [Suspect]
     Active Substance: INSULIN HUMAN
     Indication: Gestational diabetes
  26. INSULIN HUMAN [Suspect]
     Active Substance: INSULIN HUMAN
     Route: 065
  27. INSULIN HUMAN [Suspect]
     Active Substance: INSULIN HUMAN
     Route: 065
  28. INSULIN HUMAN [Suspect]
     Active Substance: INSULIN HUMAN
  29. BUPIVACAINE [Suspect]
     Active Substance: BUPIVACAINE
     Indication: Spinal anaesthesia
  30. BUPIVACAINE [Suspect]
     Active Substance: BUPIVACAINE
     Route: 037
  31. BUPIVACAINE [Suspect]
     Active Substance: BUPIVACAINE
     Route: 037
  32. BUPIVACAINE [Suspect]
     Active Substance: BUPIVACAINE
  33. PHENYLEPHRINE [Suspect]
     Active Substance: PHENYLEPHRINE
     Indication: Product used for unknown indication
     Dosage: 50 MICROGRAM, QMINUTE
  34. PHENYLEPHRINE [Suspect]
     Active Substance: PHENYLEPHRINE
     Dosage: 50 MICROGRAM, QMINUTE
     Route: 065
  35. PHENYLEPHRINE [Suspect]
     Active Substance: PHENYLEPHRINE
     Dosage: 50 MICROGRAM, QMINUTE
     Route: 065
  36. PHENYLEPHRINE [Suspect]
     Active Substance: PHENYLEPHRINE
     Dosage: 50 MICROGRAM, QMINUTE
  37. PROPOFOL [Suspect]
     Active Substance: PROPOFOL
     Indication: Product used for unknown indication
  38. PROPOFOL [Suspect]
     Active Substance: PROPOFOL
     Route: 065
  39. PROPOFOL [Suspect]
     Active Substance: PROPOFOL
     Route: 065
  40. PROPOFOL [Suspect]
     Active Substance: PROPOFOL
  41. SUCCINYLCHOLINE CHLORIDE [Suspect]
     Active Substance: SUCCINYLCHOLINE CHLORIDE
     Indication: Product used for unknown indication
  42. SUCCINYLCHOLINE CHLORIDE [Suspect]
     Active Substance: SUCCINYLCHOLINE CHLORIDE
     Route: 065
  43. SUCCINYLCHOLINE CHLORIDE [Suspect]
     Active Substance: SUCCINYLCHOLINE CHLORIDE
     Route: 065
  44. SUCCINYLCHOLINE CHLORIDE [Suspect]
     Active Substance: SUCCINYLCHOLINE CHLORIDE

REACTIONS (8)
  - Serotonin syndrome [Recovered/Resolved]
  - Tachyarrhythmia [Recovered/Resolved]
  - Bradyarrhythmia [Recovered/Resolved]
  - Metabolic acidosis [Recovered/Resolved]
  - Respiratory acidosis [Recovered/Resolved]
  - Maternal exposure during pregnancy [Recovered/Resolved]
  - Maternal exposure during delivery [Recovered/Resolved]
  - Normal newborn [Recovered/Resolved]
